FAERS Safety Report 6134058-9 (Version None)
Quarter: 2009Q1

REPORT INFORMATION
  Report Type: 
  Country: None (occurrence: None)
  Receive Date: 20090326
  Receipt Date: 20070608
  Transmission Date: 20090719
  Serious: Yes (Other)
  Sender: FDA-Public Use
  Company Number: PHBS2007BR05586

PATIENT
  Age: 48 Year
  Sex: Female
  Weight: 46 kg

DRUGS (1)
  1. COMBIPATCH [Suspect]
     Indication: HORMONE REPLACEMENT THERAPY
     Route: 062
     Dates: start: 20050101

REACTIONS (6)
  - BIOPSY BREAST [None]
  - BREAST MASS [None]
  - ERYTHEMA [None]
  - OSTEOPENIA [None]
  - PRURITUS [None]
  - SKIN IRRITATION [None]
